FAERS Safety Report 5600454-9 (Version None)
Quarter: 2008Q1

REPORT INFORMATION
  Report Type: 
  Country: None (occurrence: None)
  Receive Date: 20080118
  Receipt Date: 20080116
  Transmission Date: 20080703
  Serious: Yes (Hospitalization)
  Sender: FDA-Public Use
  Company Number: WAES 0801USA02464

PATIENT
  Age: 72 Year
  Sex: Male
  Weight: 35.3806 kg

DRUGS (6)
  1. CETUXIMAB (CETUXIMAB) [Suspect]
     Indication: PANCREATIC CARCINOMA
     Dosage: 400MG/M2 QWK I.V.
     Route: 042
     Dates: start: 20071128, end: 20071203
  2. OXALIPLATIN [Suspect]
     Indication: PANCREATIC CARCINOMA
     Dosage: 100MG/M2 Q2WK I.V.
     Route: 042
     Dates: start: 20071128, end: 20071128
  3. GEMCITABINE [Suspect]
     Indication: PANCREATIC CARCINOMA
     Dosage: 1000MG/M2 Q2WK I.V.
     Route: 042
     Dates: start: 20071128, end: 20071128
  4. INDOCIN [Suspect]
     Indication: GOUT
     Dosage: 50MG PO BID
     Route: 048
     Dates: start: 20071206
  5. ALLOPURINOL [Suspect]
     Dates: start: 20070601
  6. ALLOPURINOL [Concomitant]

REACTIONS (2)
  - DEHYDRATION [None]
  - LEUKOCYTOCLASTIC VASCULITIS [None]
